FAERS Safety Report 13669093 (Version 1)
Quarter: 2017Q2

REPORT INFORMATION
  Report Type: Spontaneous
  Country: US (occurrence: US)
  Receive Date: 20170620
  Receipt Date: 20170620
  Transmission Date: 20170830
  Serious: No
  Sender: FDA-Public Use
  Company Number: US-GLAXOSMITHKLINE-US2017093736

PATIENT
  Age: 79 Year
  Sex: Female

DRUGS (16)
  1. INCRUSE ELLIPTA [Suspect]
     Active Substance: UMECLIDINIUM BROMIDE
     Indication: CHRONIC OBSTRUCTIVE PULMONARY DISEASE
     Dosage: 1 PUFF(S), QD
     Route: 055
     Dates: start: 201706
  2. ATROVENT [Concomitant]
     Active Substance: IPRATROPIUM BROMIDE
  3. DILTIAZEM. [Concomitant]
     Active Substance: DILTIAZEM
  4. SINGULAIR [Concomitant]
     Active Substance: MONTELUKAST SODIUM
  5. TYLENOL [Concomitant]
     Active Substance: ACETAMINOPHEN
  6. SPIRONOLACTONE. [Concomitant]
     Active Substance: SPIRONOLACTONE
  7. FLONASE [Concomitant]
     Active Substance: FLUTICASONE PROPIONATE
  8. GINGER. [Concomitant]
     Active Substance: GINGER
  9. PRILOSEC [Concomitant]
     Active Substance: OMEPRAZOLE MAGNESIUM
  10. CALCIUM [Concomitant]
     Active Substance: CALCIUM
  11. LEVOTHYROXINE. [Concomitant]
     Active Substance: LEVOTHYROXINE
  12. BETAMETHASONE AND CLOTRIMAZOLE [Concomitant]
  13. ADVAIR HFA [Concomitant]
     Active Substance: FLUTICASONE PROPIONATE\SALMETEROL XINAFOATE
  14. ALLEGRA [Concomitant]
     Active Substance: FEXOFENADINE HYDROCHLORIDE
  15. XOPENEX [Concomitant]
     Active Substance: LEVALBUTEROL HYDROCHLORIDE
  16. ACIDOPHILUS [Concomitant]
     Active Substance: LACTOBACILLUS ACIDOPHILUS

REACTIONS (2)
  - Drug ineffective [Unknown]
  - Cough [Not Recovered/Not Resolved]

NARRATIVE: CASE EVENT DATE: 201706
